FAERS Safety Report 8376569-1 (Version None)
Quarter: 2012Q2

REPORT INFORMATION
  Report Type: 
  Country: None (occurrence: None)
  Receive Date: 20120522
  Receipt Date: 20120510
  Transmission Date: 20120825
  Serious: No
  Sender: FDA-Public Use
  Company Number: FR-ASTRAZENECA-2010SE49657

PATIENT
  Age: 64 Year
  Sex: Female

DRUGS (2)
  1. NEXIUM [Concomitant]
  2. CRESTOR [Suspect]
     Route: 048

REACTIONS (3)
  - SYNOVIAL CYST [None]
  - MALAISE [None]
  - DRUG INTOLERANCE [None]
